FAERS Safety Report 22291556 (Version 1)
Quarter: 2023Q2

REPORT INFORMATION
  Report Type: Spontaneous
  Country: CN (occurrence: CN)
  Receive Date: 20230506
  Receipt Date: 20230506
  Transmission Date: 20230722
  Serious: Yes (Hospitalization)
  Sender: FDA-Public Use
  Company Number: CN-FreseniusKabi-FK202305913

PATIENT
  Age: 75 Year
  Sex: Male
  Weight: 47 kg

DRUGS (2)
  1. INTRALIPID [Suspect]
     Active Substance: EGG PHOSPHOLIPIDS\GLYCERIN\SOYBEAN OIL
     Indication: Nutritional supplementation
     Dosage: DOSAGE FORM: INJECTION
     Route: 041
     Dates: start: 20230421, end: 20230425
  2. Compound Amino Acid Injection (18AA-V-SF) [Concomitant]
     Indication: Pancreatic carcinoma
     Dosage: DOSAGE FORM: INJECTION
     Route: 041
     Dates: start: 20230421, end: 20230427

REACTIONS (4)
  - Chills [Recovering/Resolving]
  - Abdominal pain [Recovering/Resolving]
  - Nausea [Recovering/Resolving]
  - Vomiting [Recovering/Resolving]

NARRATIVE: CASE EVENT DATE: 20230422
